FAERS Safety Report 6818392-2 (Version None)
Quarter: 2010Q3

REPORT INFORMATION
  Report Type: 
  Country: None (occurrence: None)
  Receive Date: 20100706
  Receipt Date: 20080324
  Transmission Date: 20110219
  Serious: No
  Sender: FDA-Public Use
  Company Number: US-PFIZER INC-2008026681

PATIENT
  Sex: Male
  Weight: 52.16 kg

DRUGS (8)
  1. ZMAX [Suspect]
     Indication: NASOPHARYNGITIS
     Dates: start: 20080213
  2. ZMAX [Suspect]
     Indication: OROPHARYNGEAL PAIN
  3. METFORMIN HCL [Concomitant]
  4. LISINOPRIL [Concomitant]
  5. HYDROCHLOROTHIAZIDE [Concomitant]
  6. ACTOS [Concomitant]
  7. PREVACID [Concomitant]
  8. AVODART [Concomitant]
     Indication: PROSTATIC DISORDER

REACTIONS (2)
  - DYSGEUSIA [None]
  - WEIGHT DECREASED [None]
